FAERS Safety Report 17899980 (Version 1)
Quarter: 2020Q2

REPORT INFORMATION
  Report Type: Spontaneous
  Country: US (occurrence: US)
  Receive Date: 20200615
  Receipt Date: 20200615
  Transmission Date: 20200714
  Serious: No
  Sender: FDA-Public Use
  Company Number: None

PATIENT
  Age: 94 Year
  Sex: Male
  Weight: 67.5 kg

DRUGS (1)
  1. BALANCE [Suspect]
     Active Substance: VITAMINS
     Route: 048

REACTIONS (1)
  - Balance disorder [None]

NARRATIVE: CASE EVENT DATE: 20200612
